FAERS Safety Report 15257925 (Version 2)
Quarter: 2018Q3

REPORT INFORMATION
  Report Type: Report from Study
  Country: None (occurrence: US)
  Receive Date: 20180808
  Receipt Date: 20180915
  Transmission Date: 20181010
  Serious: Yes (Other)
  Sender: FDA-Public Use
  Company Number: US-ABBVIE-17K-163-2090330-00

PATIENT
  Sex: Female

DRUGS (3)
  1. HUMIRA [Suspect]
     Active Substance: ADALIMUMAB
     Indication: COLITIS ULCERATIVE
     Route: 058
  2. HUMIRA [Suspect]
     Active Substance: ADALIMUMAB
     Indication: ANKYLOSING SPONDYLITIS
  3. CELEBREX [Suspect]
     Active Substance: CELECOXIB
     Indication: PRODUCT USED FOR UNKNOWN INDICATION
     Route: 065
     Dates: start: 2018, end: 2018

REACTIONS (9)
  - Colitis ulcerative [Unknown]
  - Rheumatoid arthritis [Not Recovered/Not Resolved]
  - Colitis ulcerative [Recovered/Resolved]
  - Arthritis [Not Recovered/Not Resolved]
  - Rotator cuff syndrome [Recovered/Resolved]
  - Haematochezia [Recovering/Resolving]
  - Exostosis [Not Recovered/Not Resolved]
  - Post procedural diarrhoea [Recovering/Resolving]
  - Nasopharyngitis [Recovering/Resolving]

NARRATIVE: CASE EVENT DATE: 2017
